FAERS Safety Report 6734216-6 (Version None)
Quarter: 2010Q2

REPORT INFORMATION
  Report Type: 
  Country: None (occurrence: None)
  Receive Date: 20100518
  Receipt Date: 20100513
  Transmission Date: 20101027
  Serious: Yes (Life-Threatening)
  Sender: FDA-Public Use
  Company Number: 2010TJ0098

PATIENT
  Sex: Female

DRUGS (2)
  1. TWINJECT 0.3 [Suspect]
     Indication: ANAPHYLACTIC REACTION
     Dates: start: 20100502
  2. TWINJECT 0.3 [Suspect]
     Indication: ANAPHYLACTIC REACTION
     Dates: start: 20100502

REACTIONS (1)
  - DEVICE FAILURE [None]
